FAERS Safety Report 12492046 (Version 3)
Quarter: 2016Q3

REPORT INFORMATION
  Report Type: Report from Study
  Country: JP (occurrence: JP)
  Receive Date: 20160623
  Receipt Date: 20160915
  Transmission Date: 20161109
  Serious: Yes (Hospitalization)
  Sender: FDA-Public Use
  Company Number: JP-JNJFOC-20150719696

PATIENT
  Age: 37 Year
  Sex: Male

DRUGS (23)
  1. NORVIR [Suspect]
     Active Substance: RITONAVIR
     Indication: HIV INFECTION
     Route: 048
     Dates: start: 20130327, end: 20130417
  2. SAMTIREL [Concomitant]
     Active Substance: ATOVAQUONE
     Indication: PROPHYLAXIS
     Route: 048
     Dates: start: 20130227
  3. ZIAGEN [Concomitant]
     Active Substance: ABACAVIR SULFATE
     Indication: HIV INFECTION
     Route: 048
     Dates: start: 20130115, end: 20130326
  4. MYCOBUTIN [Concomitant]
     Active Substance: RIFABUTIN
     Indication: ATYPICAL MYCOBACTERIAL INFECTION
     Route: 048
     Dates: start: 20130312
  5. ZITHROMAC [Concomitant]
     Active Substance: AZITHROMYCIN DIHYDRATE
     Indication: PROPHYLAXIS
     Route: 048
     Dates: start: 20130202, end: 20130217
  6. CALONAL [Concomitant]
     Active Substance: ACETAMINOPHEN
     Indication: PYREXIA
     Route: 048
  7. DOXIL [Suspect]
     Active Substance: DOXORUBICIN HYDROCHLORIDE
     Indication: KAPOSI^S SARCOMA AIDS RELATED
     Dosage: 2 COURSE
     Route: 042
     Dates: start: 20130221, end: 20130221
  8. DOXIL [Suspect]
     Active Substance: DOXORUBICIN HYDROCHLORIDE
     Indication: KAPOSI^S SARCOMA AIDS RELATED
     Dosage: 1 COURSE
     Route: 042
     Dates: start: 20130111, end: 20130111
  9. NORVIR [Suspect]
     Active Substance: RITONAVIR
     Indication: HIV INFECTION
     Route: 048
     Dates: start: 20130115, end: 20130326
  10. EDURANT [Concomitant]
     Active Substance: RILPIVIRINE HYDROCHLORIDE
     Indication: HIV INFECTION
     Route: 048
     Dates: start: 20130418
  11. EPIVIR [Suspect]
     Active Substance: LAMIVUDINE
     Indication: HIV INFECTION
     Route: 048
     Dates: start: 20130115, end: 20130326
  12. EPZICOM [Suspect]
     Active Substance: ABACAVIR SULFATE\LAMIVUDINE
     Indication: HIV INFECTION
     Route: 048
     Dates: start: 20130327
  13. ETHAMBUTOL HYDROCHLORIDE. [Concomitant]
     Active Substance: ETHAMBUTOL HYDROCHLORIDE
     Indication: ATYPICAL MYCOBACTERIAL INFECTION
     Route: 048
     Dates: start: 20130110, end: 20130118
  14. CLARITHROMYCIN. [Concomitant]
     Active Substance: CLARITHROMYCIN
     Indication: ATYPICAL MYCOBACTERIAL INFECTION
     Route: 048
     Dates: start: 20130110, end: 20130121
  15. PREZISTA [Suspect]
     Active Substance: DARUNAVIR ETHANOLATE
     Indication: HIV INFECTION
     Route: 048
     Dates: start: 20130115, end: 20130326
  16. NEUTROGIN [Concomitant]
     Active Substance: LENOGRASTIM
     Route: 065
     Dates: start: 20130122, end: 20130123
  17. CRAVIT [Concomitant]
     Active Substance: LEVOFLOXACIN
     Route: 048
     Dates: start: 20130312
  18. GRAN [Concomitant]
     Active Substance: FILGRASTIM
     Route: 058
     Dates: end: 20130120
  19. PREZISTA [Suspect]
     Active Substance: DARUNAVIR ETHANOLATE
     Indication: HIV INFECTION
     Route: 048
     Dates: start: 20130327, end: 20130417
  20. GANCICLOVIR. [Concomitant]
     Active Substance: GANCICLOVIR
     Indication: CYTOMEGALOVIRUS CHORIORETINITIS
     Route: 042
     Dates: start: 20130403, end: 20130423
  21. MYCOBUTIN [Concomitant]
     Active Substance: RIFABUTIN
     Indication: ATYPICAL MYCOBACTERIAL INFECTION
     Route: 048
     Dates: start: 20130110, end: 20130118
  22. VANCOMYCIN HYDROCHLORIDE. [Concomitant]
     Active Substance: VANCOMYCIN HYDROCHLORIDE
     Indication: PYREXIA
     Route: 042
     Dates: start: 20130220, end: 20130222
  23. NEUTROGIN [Concomitant]
     Active Substance: LENOGRASTIM
     Route: 065
     Dates: start: 20130121, end: 20130121

REACTIONS (5)
  - Nausea [Recovering/Resolving]
  - Renal impairment [Recovered/Resolved]
  - White blood cell count decreased [Not Recovered/Not Resolved]
  - Platelet count decreased [Not Recovered/Not Resolved]
  - Cytomegalovirus chorioretinitis [Recovering/Resolving]

NARRATIVE: CASE EVENT DATE: 20130117
